FAERS Safety Report 16873382 (Version 1)
Quarter: 2019Q4

REPORT INFORMATION
  Report Type: Spontaneous
  Country: US (occurrence: US)
  Receive Date: 20191001
  Receipt Date: 20191001
  Transmission Date: 20200122
  Serious: No
  Sender: FDA-Public Use
  Company Number: US-PERRIGO-19US009456

PATIENT
  Sex: Female
  Weight: 74.38 kg

DRUGS (2)
  1. NITROGLYCERIN. [Suspect]
     Active Substance: NITROGLYCERIN
     Indication: ANGINA PECTORIS
     Dosage: 400 TO 1200 MCG, PRN
     Route: 048
     Dates: start: 2015
  2. NITROGLYCERIN. [Suspect]
     Active Substance: NITROGLYCERIN
     Dosage: 400 TO 1200 MCG, PRN
     Route: 048

REACTIONS (1)
  - Expired product administered [Not Recovered/Not Resolved]
